FAERS Safety Report 13969732 (Version 1)
Quarter: 2017Q3

REPORT INFORMATION
  Report Type: Spontaneous
  Country: AT (occurrence: AT)
  Receive Date: 20170914
  Receipt Date: 20170914
  Transmission Date: 20171128
  Serious: Yes (Other)
  Sender: FDA-Public Use
  Company Number: AT-PFIZER INC-2017389906

PATIENT
  Age: 35 Year
  Sex: Female
  Weight: 100 kg

DRUGS (6)
  1. TRITTICO XR [Concomitant]
     Active Substance: TRAZODONE HYDROCHLORIDE
     Indication: DEPRESSION
     Dosage: 75 MG, 1X/DAY, HALF OF 150 MG TABLET
  2. ENBREL [Suspect]
     Active Substance: ETANERCEPT
     Indication: RHEUMATOID ARTHRITIS
     Dosage: 25 MG, 2X/WEEK, MON AND THU
     Dates: start: 2012
  3. MAGNOSOLV [Concomitant]
     Dosage: 1 DF, 1X/DAY
  4. VENLAFAXINE HCL [Suspect]
     Active Substance: VENLAFAXINE HYDROCHLORIDE
     Indication: DEPRESSION
     Dosage: 75 MG, 1X/DAY
  5. OLEOVIT-D3 [Concomitant]
     Dosage: 30 GTT, WEEKLY
  6. PREDNISOLON [Concomitant]
     Active Substance: PREDNISOLONE
     Indication: RHEUMATOID ARTHRITIS
     Dosage: 7.5 MG, 1X/DAY, (1.5 DF)

REACTIONS (3)
  - Fall [Unknown]
  - Premature delivery [Unknown]
  - Amniorrhexis [Unknown]

NARRATIVE: CASE EVENT DATE: 201708
